FAERS Safety Report 10934726 (Version 2)
Quarter: 2015Q2

REPORT INFORMATION
  Report Type: Spontaneous
  Country: US (occurrence: US)
  Receive Date: 20150320
  Receipt Date: 20150617
  Transmission Date: 20150821
  Serious: No
  Sender: FDA-Public Use
  Company Number: US-GALDERMA-US15000448

PATIENT
  Age: 49 Year
  Sex: Female
  Weight: 61.29 kg

DRUGS (5)
  1. CERAVE FOAMING CLEANSER [Concomitant]
     Indication: THERAPEUTIC SKIN CARE TOPICAL
     Route: 061
  2. ESTRADIOL PATCH [Concomitant]
     Route: 061
  3. MIRVASO [Suspect]
     Active Substance: BRIMONIDINE TARTRATE
     Indication: ROSACEA
     Dosage: 0.33%
     Route: 061
     Dates: start: 20150119, end: 20150202
  4. CERAVE MOISTURIZIER [Concomitant]
     Indication: DRY SKIN PROPHYLAXIS
     Route: 061
  5. AMBIEN (ZOLPIDEM) [Concomitant]
     Indication: INSOMNIA

REACTIONS (1)
  - Eyelid oedema [Recovered/Resolved]

NARRATIVE: CASE EVENT DATE: 20150130
